FAERS Safety Report 5586071-8 (Version None)
Quarter: 2008Q1

REPORT INFORMATION
  Report Type: 
  Country: None (occurrence: None)
  Receive Date: 20080107
  Receipt Date: 20071221
  Transmission Date: 20080703
  Serious: No
  Sender: FDA-Public Use
  Company Number: 2007AL005461

PATIENT
  Age: 38 Year
  Sex: Male

DRUGS (4)
  1. GLYBURIDE [Suspect]
     Indication: DIABETES MELLITUS
     Dosage: BID; PO
     Route: 048
     Dates: start: 20071130
  2. ALLOPURINOL [Concomitant]
  3. ENALAPRIL MALEATE [Concomitant]
  4. SIMVASTATIN [Concomitant]

REACTIONS (1)
  - HYPERSENSITIVITY [None]
